FAERS Safety Report 5798316-X (Version None)
Quarter: 2008Q3

REPORT INFORMATION
  Report Type: 
  Country: None (occurrence: None)
  Receive Date: 20080702
  Receipt Date: 20080623
  Transmission Date: 20090109
  Serious: Yes (Hospitalization)
  Sender: FDA-Public Use
  Company Number: JP-BRISTOL-MYERS SQUIBB COMPANY-14245260

PATIENT
  Age: 31 Year
  Sex: Male
  Weight: 80 kg

DRUGS (12)
  1. ABILIFY [Suspect]
     Indication: SCHIZOPHRENIA
     Dosage: 12MG7JUN07;8JUN07-18MG;20JUL07-24MG;27JUL07-18MG;21SEP07-21MG;14MAR08-24MG;22MAY08-18MG;5JUN08-30MG.
     Route: 048
     Dates: start: 20070525
  2. RISPERDAL [Concomitant]
  3. TRIHEXYPHENIDYL HCL [Concomitant]
  4. ROHIPNOL [Concomitant]
  5. HALCION [Concomitant]
  6. LULLAN [Concomitant]
     Dates: start: 20061213, end: 20080403
  7. ALPRAZOLAM [Concomitant]
     Dosage: TAB
     Dates: start: 20070131, end: 20071225
  8. DEPAKENE [Concomitant]
     Dosage: 25MAY07 -07FEB08, 8FEB08 - CONT
     Dates: start: 20080208
  9. PROCRAZINE [Concomitant]
     Dates: start: 20070525
  10. SENNOSIDE [Concomitant]
     Dosage: TAB
     Dates: start: 20070601
  11. LITHIUM CARBONATE [Concomitant]
     Dates: start: 20071116, end: 20071225
  12. LANDSEN [Concomitant]
     Dates: start: 20071226

REACTIONS (3)
  - ANGER [None]
  - DELUSION [None]
  - INSOMNIA [None]
